FAERS Safety Report 24451668 (Version 1)
Quarter: 2024Q4

REPORT INFORMATION
  Report Type: Spontaneous
  Country: US (occurrence: None)
  Receive Date: 20241017
  Receipt Date: 20241017
  Transmission Date: 20250115
  Serious: Yes (Other)
  Sender: Public
  Company Number: None

PATIENT
  Age: 7 Month
  Sex: Male
  Weight: 8.01 kg

DRUGS (1)
  1. BEYFORTUS [Suspect]
     Active Substance: NIRSEVIMAB-ALIP
     Dosage: OTHER FREQUENCY : ONE TIME DOSE;?
     Route: 030

REACTIONS (5)
  - Dyspnoea [None]
  - Eyelid rash [None]
  - Lacrimation increased [None]
  - Swelling of eyelid [None]
  - Rash macular [None]

NARRATIVE: CASE EVENT DATE: 20241015
